FAERS Safety Report 25973468 (Version 2)
Quarter: 2025Q4

REPORT INFORMATION
  Report Type: Spontaneous
  Country: US (occurrence: US)
  Receive Date: 20251029
  Receipt Date: 20251124
  Transmission Date: 20260117
  Serious: No
  Sender: LEO PHARM
  Company Number: US-LEO Pharma-383248

PATIENT
  Sex: Female

DRUGS (2)
  1. ANZUPGO [Suspect]
     Active Substance: DELGOCITINIB
     Indication: Product used for unknown indication
     Dosage: DRUG USED ON HANDS
     Route: 003
  2. QBREXZA [Suspect]
     Active Substance: GLYCOPYRRONIUM TOSYLATE
     Indication: Product used for unknown indication

REACTIONS (3)
  - Mydriasis [Recovered/Resolved]
  - Dry skin [Unknown]
  - Accidental exposure to product [Unknown]
